FAERS Safety Report 4405297-X (Version None)
Quarter: 2004Q3

REPORT INFORMATION
  Report Type: 
  Country: None (occurrence: None)
  Receive Date: 20040716
  Receipt Date: 20040705
  Transmission Date: 20050211
  Serious: Yes (Other)
  Sender: FDA-Public Use
  Company Number: GB-JNJFOC-20040603407

PATIENT
  Age: 3 Month
  Sex: Male

DRUGS (1)
  1. MICONAZOLE [Suspect]

REACTIONS (4)
  - CONVERSION DISORDER [None]
  - EYE PAIN [None]
  - EYE REDNESS [None]
  - SCREAMING [None]
